FAERS Safety Report 8906326 (Version 1)
Quarter: 2012Q4

REPORT INFORMATION
  Report Type: Spontaneous
  Country: US (occurrence: None)
  Receive Date: 20121107
  Receipt Date: 20121107
  Transmission Date: 20130627
  Serious: Yes (Death, Other)
  Sender: FDA-Public Use
  Company Number: TPA2012A02912

PATIENT
  Sex: Female

DRUGS (8)
  1. ACTOS (PIOGLITAZONE HYDROCHLORIDE) [Suspect]
     Indication: TYPE 2 DIABETES MELLITUS
     Dosage: 30 mg years prior to 2011 - //2007
  2. GLYBURIDE (GLIBENCLAMIDE) [Concomitant]
  3. LISINOPRIL (LISINOPRIL) [Concomitant]
  4. PRAMIPEXOLE (PRAMIPEXOLE) [Concomitant]
  5. LEVOTHYROXINE (LEVOTHYROXINE) [Concomitant]
  6. LIPITOR (ATORVASTATIN CALCIUM) [Concomitant]
  7. METFORMIN (METFORMIN) [Concomitant]
  8. NABUMETONE (NABUMETONE) [Concomitant]

REACTIONS (3)
  - Bladder cancer [None]
  - Back pain [None]
  - Bladder diverticulum [None]
